FAERS Safety Report 5620532-8 (Version None)
Quarter: 2008Q1

REPORT INFORMATION
  Report Type: 
  Country: None (occurrence: None)
  Receive Date: 20080208
  Receipt Date: 20080129
  Transmission Date: 20080703
  Serious: Yes (Hospitalization, Other)
  Sender: FDA-Public Use
  Company Number: US-ELI_LILLY_AND_COMPANY-US200801006566

PATIENT
  Sex: Male

DRUGS (17)
  1. CYMBALTA [Suspect]
     Indication: DEPRESSION
     Dosage: 30 MG, 2/D
     Dates: start: 20071101, end: 20080107
  2. WELLBUTRIN XL [Concomitant]
     Indication: DEPRESSION
     Dosage: 300 MG, DAILY (1/D)
     Dates: start: 20040101
  3. METOPROLOL TARTRATE [Concomitant]
  4. AGGRENOX [Concomitant]
  5. TORSEMIDE [Concomitant]
  6. IRBESARTAN [Concomitant]
  7. EPLERENONE [Concomitant]
  8. SIMVASTATIN [Concomitant]
  9. FOLIC ACID [Concomitant]
  10. GABAPENTIN [Concomitant]
  11. BORAGE OIL [Concomitant]
  12. MELOXICAM [Concomitant]
  13. FEXOFENADINE HYDROCHLORIDE [Concomitant]
  14. DONEPEZIL HCL [Concomitant]
  15. MULTI-VITAMIN [Concomitant]
  16. ASCORBIC ACID [Concomitant]
  17. OTHER OPHTHALMOLOGICALS [Concomitant]

REACTIONS (15)
  - CARDIAC DISORDER [None]
  - CARDIAC FAILURE [None]
  - CONVULSION [None]
  - DIZZINESS [None]
  - DYSPNOEA [None]
  - EJECTION FRACTION DECREASED [None]
  - EYE ROLLING [None]
  - HALLUCINATION [None]
  - HEADACHE [None]
  - HOT FLUSH [None]
  - NAUSEA [None]
  - NIGHTMARE [None]
  - PALPITATIONS [None]
  - VISION BLURRED [None]
  - VOMITING [None]
